FAERS Safety Report 6199496-7 (Version None)
Quarter: 2009Q2

REPORT INFORMATION
  Report Type: 
  Country: None (occurrence: None)
  Receive Date: 20090520
  Receipt Date: 20090520
  Transmission Date: 20091009
  Serious: No
  Sender: FDA-Public Use
  Company Number: None

PATIENT

DRUGS (1)
  1. SEROQUEL [Suspect]

REACTIONS (4)
  - ABNORMAL WEIGHT GAIN [None]
  - GAIT DISTURBANCE [None]
  - HYPERPHAGIA [None]
  - OCULAR HYPERAEMIA [None]
